FAERS Safety Report 9302224 (Version 2)
Quarter: 2013Q4

REPORT INFORMATION
  Report Type: Spontaneous
  Country: US (occurrence: US)
  Receive Date: 20130522
  Receipt Date: 20131112
  Transmission Date: 20140711
  Serious: Yes (Hospitalization)
  Sender: FDA-Public Use
  Company Number: US-B.I. PHARMACEUTICALS,INC./RIDGEFIELD-2013-BI-14122BP

PATIENT
  Age: 85 Year
  Sex: Female
  Weight: 62.14 kg

DRUGS (9)
  1. PRADAXA [Suspect]
     Indication: ANTICOAGULANT THERAPY
     Dosage: 300 MG
     Dates: start: 20110604, end: 20111221
  2. PRADAXA [Suspect]
     Indication: ATRIAL FIBRILLATION
  3. COREG [Concomitant]
     Dosage: 3.125 MG
  4. CEREFOLIN [Concomitant]
  5. DIGOXIN [Concomitant]
     Dosage: 125 MCG
  6. GABAPENTIN [Concomitant]
     Dosage: 400 MG
  7. MULTIVITAMIN [Concomitant]
  8. ZOCOR [Concomitant]
     Route: 048
  9. TRAMADOL [Concomitant]
     Indication: PAIN
     Route: 048

REACTIONS (6)
  - Upper gastrointestinal haemorrhage [Unknown]
  - Gastrointestinal haemorrhage [Unknown]
  - Anaemia [Unknown]
  - Anaemia [Unknown]
  - Embolic stroke [Unknown]
  - Cerebrovascular accident [Unknown]
